FAERS Safety Report 24175097 (Version 2)
Quarter: 2024Q3

REPORT INFORMATION
  Report Type: Report from Study
  Country: CN (occurrence: CN)
  Receive Date: 20240805
  Receipt Date: 20240913
  Transmission Date: 20241017
  Serious: Yes (Other)
  Sender: NOVARTIS
  Company Number: CN-002147023-NVSC2024CN158462

PATIENT
  Sex: Male
  Weight: 82 kg

DRUGS (2)
  1. COSENTYX [Suspect]
     Active Substance: SECUKINUMAB
     Indication: Ankylosing spondylitis
     Dosage: 150 MG, QMO (1 INJECTION PER TIME)
     Route: 058
     Dates: start: 2022
  2. COSENTYX [Suspect]
     Active Substance: SECUKINUMAB
     Dosage: 300 MG, QMO (2 INJECTIONS PER TIME)
     Route: 058

REACTIONS (5)
  - Spinal cord injury [Unknown]
  - Osteochondrosis [Unknown]
  - Swelling [Recovered/Resolved]
  - Pain [Recovered/Resolved]
  - Drug ineffective [Unknown]
